FAERS Safety Report 16525282 (Version 1)
Quarter: 2019Q3

REPORT INFORMATION
  Report Type: Spontaneous
  Country: CN (occurrence: CN)
  Receive Date: 20190703
  Receipt Date: 20190703
  Transmission Date: 20191004
  Serious: Yes (Hospitalization)
  Sender: FDA-Public Use
  Company Number: PHHY2019CN150546

PATIENT
  Age: 71 Year
  Sex: Male
  Weight: 70 kg

DRUGS (4)
  1. OXCARBAZEPINE. [Suspect]
     Active Substance: OXCARBAZEPINE
     Indication: PETIT MAL EPILEPSY
  2. DEPAKINE [Suspect]
     Active Substance: VALPROATE SODIUM
     Indication: GENERALISED TONIC-CLONIC SEIZURE
     Dosage: 12.5 ML, BID
     Route: 045
     Dates: start: 20190603, end: 20190606
  3. OXCARBAZEPINE. [Suspect]
     Active Substance: OXCARBAZEPINE
     Indication: GENERALISED TONIC-CLONIC SEIZURE
     Dosage: 0.3 G, BID
     Route: 048
     Dates: start: 20190613, end: 20190624
  4. DEPAKINE [Suspect]
     Active Substance: VALPROATE SODIUM
     Indication: PETIT MAL EPILEPSY
     Dosage: 18.5 ML, BID
     Route: 045
     Dates: start: 20190606, end: 20190624

REACTIONS (2)
  - Hyperammonaemia [Unknown]
  - Coma hepatic [Unknown]

NARRATIVE: CASE EVENT DATE: 20190618
